FAERS Safety Report 8489559-5 (Version None)
Quarter: 2012Q3

REPORT INFORMATION
  Report Type: 
  Country: None (occurrence: None)
  Receive Date: 20120705
  Receipt Date: 20120702
  Transmission Date: 20120928
  Serious: No
  Sender: FDA-Public Use
  Company Number: US-PFIZER INC-2012127269

PATIENT
  Sex: Male
  Weight: 68.027 kg

DRUGS (1)
  1. AVINZA [Suspect]
     Indication: PAIN
     Dosage: 90 MG, 2X/DAY
     Route: 048
     Dates: start: 20120221, end: 20120525

REACTIONS (3)
  - DIARRHOEA [None]
  - NAUSEA [None]
  - VOMITING [None]
